FAERS Safety Report 15289845 (Version 1)
Quarter: 2018Q3

REPORT INFORMATION
  Report Type: Spontaneous
  Country: US (occurrence: US)
  Receive Date: 20180817
  Receipt Date: 20180817
  Transmission Date: 20181010
  Serious: No
  Sender: FDA-Public Use
  Company Number: US-MYLANLABS-2018M1059397

PATIENT
  Age: 20 Year
  Sex: Female

DRUGS (1)
  1. CLONAZEPAM MYLAN [Suspect]
     Active Substance: CLONAZEPAM
     Indication: SEIZURE
     Dosage: 1 MG, UNK
     Dates: start: 2006, end: 201806

REACTIONS (4)
  - Nausea [Unknown]
  - Nervousness [Unknown]
  - Abnormal dreams [Unknown]
  - Headache [Unknown]

NARRATIVE: CASE EVENT DATE: 201806
